FAERS Safety Report 7068180-X (Version None)
Quarter: 2010Q4

REPORT INFORMATION
  Report Type: 
  Country: None (occurrence: None)
  Receive Date: 20101028
  Receipt Date: 20070817
  Transmission Date: 20110411
  Serious: Yes (Congenital Anomaly)
  Sender: FDA-Public Use
  Company Number: US-ROCHE-513174

PATIENT
  Sex: Male

DRUGS (2)
  1. SAQUINAVIR [Suspect]
     Indication: PRODUCT USED FOR UNKNOWN INDICATION
     Route: 064
  2. ALCOHOL [Concomitant]

REACTIONS (2)
  - CONGENITAL HEPATOMEGALY [None]
  - HYDROCELE [None]
